FAERS Safety Report 10354388 (Version 1)
Quarter: 2014Q3

REPORT INFORMATION
  Report Type: Spontaneous
  Country: CA (occurrence: CA)
  Receive Date: 20140731
  Receipt Date: 20140731
  Transmission Date: 20150326
  Serious: Yes (Hospitalization)
  Sender: FDA-Public Use
  Company Number: CA-ROCHE-1438917

PATIENT
  Age: 52 Year
  Sex: Female

DRUGS (24)
  1. ACETAMINOPHEN. [Suspect]
     Active Substance: ACETAMINOPHEN
     Indication: PRODUCT USED FOR UNKNOWN INDICATION
     Dosage: THERAPY DURATION: 644 DAYS
     Route: 048
  2. EPIVAL [Suspect]
     Active Substance: DIVALPROEX SODIUM
     Dosage: THERAPY DURATION: 187 DAYS
     Route: 048
  3. CLONAZEPAM. [Suspect]
     Active Substance: CLONAZEPAM
     Indication: PRODUCT USED FOR UNKNOWN INDICATION
     Route: 048
  4. EPIVAL [Suspect]
     Active Substance: DIVALPROEX SODIUM
     Indication: PRODUCT USED FOR UNKNOWN INDICATION
     Route: 065
  5. TEGRETOL [Suspect]
     Active Substance: CARBAMAZEPINE
     Indication: PRODUCT USED FOR UNKNOWN INDICATION
     Dosage: THERAPY DURATION: 10 DAYS
     Route: 065
  6. BENADRYL [Concomitant]
     Active Substance: DIPHENHYDRAMINE HYDROCHLORIDE
  7. NYSTATIN. [Concomitant]
     Active Substance: NYSTATIN
  8. EPIVAL [Suspect]
     Active Substance: DIVALPROEX SODIUM
     Dosage: THERAPY DURATION: 187 DAYS
     Route: 048
  9. TRAZODONE [Suspect]
     Active Substance: TRAZODONE HYDROCHLORIDE
     Indication: PRODUCT USED FOR UNKNOWN INDICATION
     Dosage: THERAPY DURATION: 45 DAYS
     Route: 048
  10. IMODIUM [Concomitant]
     Active Substance: LOPERAMIDE HYDROCHLORIDE
  11. LACTULOSE. [Concomitant]
     Active Substance: LACTULOSE
     Route: 065
  12. SEROQUEL [Suspect]
     Active Substance: QUETIAPINE FUMARATE
     Indication: PRODUCT USED FOR UNKNOWN INDICATION
     Dosage: THERAPY DURATION: 24 DAYS
     Route: 048
  13. TRAZODONE [Suspect]
     Active Substance: TRAZODONE HYDROCHLORIDE
     Route: 048
  14. OLANZAPINE. [Suspect]
     Active Substance: OLANZAPINE
     Indication: PRODUCT USED FOR UNKNOWN INDICATION
     Dosage: THERAPY DURATION: 555 DAYS
     Route: 048
  15. CALCIUM CARBONATE. [Concomitant]
     Active Substance: CALCIUM CARBONATE
  16. TIPRANAVIR [Suspect]
     Active Substance: TIPRANAVIR
     Indication: PRODUCT USED FOR UNKNOWN INDICATION
     Dosage: THERAPY DURATION: 788 DAYS
     Route: 048
  17. FUZEON [Concomitant]
     Active Substance: ENFUVIRTIDE
     Dosage: SINGLE USE VIAL
     Route: 065
  18. PROCYCLIDINE HCL [Suspect]
     Active Substance: PROCYCLIDINE HYDROCHLORIDE
     Indication: PRODUCT USED FOR UNKNOWN INDICATION
     Dosage: THERAPY DURATION: 153 DAYS
     Route: 048
  19. CHLORAL HYDRATE [Concomitant]
     Active Substance: CHLORAL HYDRATE
  20. KALETRA [Concomitant]
     Active Substance: LOPINAVIR\RITONAVIR
  21. RISPERIDONE. [Suspect]
     Active Substance: RISPERIDONE
     Indication: PRODUCT USED FOR UNKNOWN INDICATION
     Dosage: THERAPY DURATION: 47 DAYS
     Route: 048
  22. OLANZAPINE. [Suspect]
     Active Substance: OLANZAPINE
     Dosage: THERAPY DURATION: 555 DAYS
     Route: 048
  23. 3TC [Concomitant]
     Active Substance: LAMIVUDINE
  24. BISACODYL. [Concomitant]
     Active Substance: BISACODYL

REACTIONS (12)
  - Condition aggravated [Unknown]
  - Blood bilirubin increased [Unknown]
  - Vomiting [Unknown]
  - Cholelithiasis [Unknown]
  - Hepatotoxicity [Unknown]
  - Nausea [Unknown]
  - Jaundice cholestatic [Unknown]
  - Psychotic disorder [Unknown]
  - Schizophrenia [Unknown]
  - Hepatic enzyme increased [Unknown]
  - Hypomania [Unknown]
  - Pneumonia [Unknown]
